FAERS Safety Report 6336662-1 (Version None)
Quarter: 2009Q3

REPORT INFORMATION
  Report Type: 
  Country: None (occurrence: None)
  Receive Date: 20090831
  Receipt Date: 20090831
  Transmission Date: 20100115
  Serious: Yes (Life-Threatening, Hospitalization)
  Sender: FDA-Public Use
  Company Number: None

PATIENT
  Age: 45 Year
  Sex: Male
  Weight: 163.2949 kg

DRUGS (1)
  1. AMIODARONE HCL [Suspect]
     Indication: ATRIAL FIBRILLATION
     Dosage: 400 MG TWICE PO
     Route: 048
     Dates: start: 20070101, end: 20090802

REACTIONS (4)
  - INJURY [None]
  - LIVER INJURY [None]
  - PULMONARY TOXICITY [None]
  - THYROID DISORDER [None]
